FAERS Safety Report 7747144-4 (Version None)
Quarter: 2011Q3

REPORT INFORMATION
  Report Type: 
  Country: None (occurrence: None)
  Receive Date: 20110913
  Receipt Date: 20110901
  Transmission Date: 20111222
  Serious: Yes (Hospitalization, Other)
  Sender: FDA-Public Use
  Company Number: DE-PFIZER INC-2011213561

PATIENT
  Age: 83 Year
  Sex: Male

DRUGS (7)
  1. XARELTO [Suspect]
     Indication: THROMBOSIS PROPHYLAXIS
     Dosage: UNK
     Route: 048
     Dates: start: 20091207, end: 20091209
  2. FLOTRIN [Concomitant]
     Dosage: UNK
     Dates: start: 20070101
  3. ZINACEF [Concomitant]
  4. PANTOPRAZOLE [Concomitant]
     Dosage: UNK
  5. ENOXAPARIN SODIUM [Concomitant]
     Dosage: UNK
     Dates: start: 20091209, end: 20091229
  6. EMBOLEX [Concomitant]
     Dosage: UNK
     Dates: start: 20091209
  7. IBUPROFEN [Suspect]
     Indication: PAIN
     Dosage: 1800 MG,
     Route: 048
     Dates: start: 20091207

REACTIONS (1)
  - HAEMARTHROSIS [None]
